FAERS Safety Report 9006286 (Version 2)
Quarter: 2013Q1

REPORT INFORMATION
  Report Type: Spontaneous
  Country: US (occurrence: US)
  Receive Date: 20130110
  Receipt Date: 20130214
  Transmission Date: 20140127
  Serious: No
  Sender: FDA-Public Use
  Company Number: US-MERCK-1301USA003178

PATIENT
  Sex: Female

DRUGS (3)
  1. SINGULAIR [Suspect]
     Route: 048
  2. FLONASE [Suspect]
  3. KETEK [Suspect]
     Dosage: 1 DF, UNK

REACTIONS (1)
  - No adverse event [Unknown]
